FAERS Safety Report 9366542 (Version 2)
Quarter: 2013Q3

REPORT INFORMATION
  Report Type: Spontaneous
  Country: FR (occurrence: None)
  Receive Date: 20130620
  Receipt Date: 20130813
  Transmission Date: 20140515
  Serious: Yes (Hospitalization)
  Sender: FDA-Public Use
  Company Number: FK201302074

PATIENT
  Age: 23 Year
  Sex: Male

DRUGS (6)
  1. PROPOFOL [Suspect]
     Indication: PRODUCT USED FOR UNKNOWN INDICATION
     Dosage: ( NOT OTHERWISE SPECIFIED)
     Route: 042
     Dates: start: 20130424, end: 20130424
  2. LOVENOX (HEPARIN-FRACTION, SODIUIM SALT) [Concomitant]
  3. LYRICA (PREGABALIN) [Concomitant]
  4. PARACETAMOL (PARACETAMOL) [Concomitant]
  5. TRAMADOL (TRAMADOL) [Concomitant]
  6. RIVOTRIL (CLONAZEPAM) [Concomitant]

REACTIONS (3)
  - Bradycardia [None]
  - Cardio-respiratory arrest [None]
  - Ventricular fibrillation [None]
